FAERS Safety Report 5755110-3 (Version None)
Quarter: 2008Q2

REPORT INFORMATION
  Report Type: 
  Country: None (occurrence: None)
  Receive Date: 20080602
  Receipt Date: 20080321
  Transmission Date: 20081010
  Serious: No
  Sender: FDA-Public Use
  Company Number: A0718159A

PATIENT
  Age: 76 Year
  Sex: Female
  Weight: 77.3 kg

DRUGS (10)
  1. AUGMENTIN '125' [Suspect]
     Indication: DRUG USE FOR UNKNOWN INDICATION
     Route: 048
  2. ALTACE [Concomitant]
  3. CARTIA XT [Concomitant]
  4. FUROSEMIDE [Concomitant]
     Dosage: 3TABS PER DAY
  5. ASPIRIN [Concomitant]
  6. VITAMIN [Concomitant]
  7. XANAX [Concomitant]
  8. NITROGLYCERIN [Concomitant]
  9. UNSPECIFIED MEDICATION [Concomitant]
  10. TYLENOL [Concomitant]

REACTIONS (1)
  - DRUG HYPERSENSITIVITY [None]
